FAERS Safety Report 11005728 (Version 3)
Quarter: 2015Q2

REPORT INFORMATION
  Report Type: Report from Study
  Country: CN (occurrence: CN)
  Receive Date: 20150409
  Receipt Date: 20150520
  Transmission Date: 20150821
  Serious: Yes (Death, Life-Threatening)
  Sender: FDA-Public Use
  Company Number: CN-EISAI MEDICAL RESEARCH-EC-2015-005780

PATIENT
  Age: 54 Year
  Sex: Male
  Weight: 52 kg

DRUGS (5)
  1. LENVATINIB [Suspect]
     Active Substance: LENVATINIB
     Route: 048
     Dates: start: 20150317, end: 20150405
  2. HYDROTALCITE [Concomitant]
     Active Substance: HYDROTALCITE
  3. ENTECAVIR. [Concomitant]
     Active Substance: ENTECAVIR
  4. LENVATINIB [Suspect]
     Active Substance: LENVATINIB
     Indication: HEPATOCELLULAR CARCINOMA
     Route: 048
     Dates: start: 20140925, end: 20150312
  5. ALUMINUM PHOSPHATE GEL [Concomitant]
     Active Substance: ALUMINUM PHOSPHATE

REACTIONS (1)
  - Cerebrovascular accident [Fatal]

NARRATIVE: CASE EVENT DATE: 20150406
